FAERS Safety Report 4506135-7 (Version None)
Quarter: 2004Q4

REPORT INFORMATION
  Report Type: 
  Country: None (occurrence: None)
  Receive Date: 20041025
  Receipt Date: 20040806
  Transmission Date: 20050328
  Serious: Yes (Life-Threatening, Hospitalization, Other)
  Sender: FDA-Public Use
  Company Number: US-JNJFOC-20040404754

PATIENT
  Age: 42 Year
  Sex: Female
  Weight: 45.8133 kg

DRUGS (3)
  1. REMICADE [Suspect]
     Indication: CROHN'S DISEASE
     Dosage: INTRAVENOUS;  230 MG, INTRAVENOUS
     Route: 042
     Dates: start: 20040324
  2. REMICADE [Suspect]
     Indication: CROHN'S DISEASE
     Dosage: INTRAVENOUS;  230 MG, INTRAVENOUS
     Route: 042
     Dates: start: 20040420
  3. BENADRYL [Concomitant]

REACTIONS (11)
  - BLOOD PRESSURE DECREASED [None]
  - CHEST DISCOMFORT [None]
  - DYSPNOEA [None]
  - FAECAL INCONTINENCE [None]
  - FLUSHING [None]
  - HEART RATE INCREASED [None]
  - INFUSION RELATED REACTION [None]
  - NAUSEA [None]
  - OEDEMA [None]
  - SYNCOPE [None]
  - VOMITING [None]
